FAERS Safety Report 8913846 (Version 1)
Quarter: 2012Q4

REPORT INFORMATION
  Report Type: Report from Study
  Country: IN (occurrence: IN)
  Receive Date: 20121119
  Receipt Date: 20121119
  Transmission Date: 20130627
  Serious: Yes (Death, Life-Threatening, Hospitalization)
  Sender: FDA-Public Use
  Company Number: IN-TEVA-369617ISR

PATIENT
  Age: 37 Year
  Sex: Male

DRUGS (7)
  1. PREDNISOLONE [Suspect]
     Indication: RENAL TRANSPLANT
     Dates: start: 20101126, end: 20121028
  2. BELATACEPT [Suspect]
     Indication: RENAL TRANSPLANT
     Route: 042
     Dates: start: 20080125, end: 20120831
  3. MYCOPHENOLATE SODIUM [Suspect]
     Indication: RENAL TRANSPLANT
     Dates: start: 20110614, end: 20121028
  4. SODIUM BICARBONATE [Concomitant]
     Dates: start: 20120124, end: 20121028
  5. FEBUXOSTAT [Concomitant]
     Dates: start: 20120223, end: 20120926
  6. POTASSIUM CITRATE [Concomitant]
     Dates: start: 20110905, end: 20120926
  7. URIMAX [Concomitant]
     Dates: start: 20110613, end: 20120926

REACTIONS (1)
  - Brain abscess [Fatal]
